FAERS Safety Report 13738737 (Version 1)
Quarter: 2017Q3

REPORT INFORMATION
  Report Type: Report from Study
  Country: US (occurrence: US)
  Receive Date: 20170710
  Receipt Date: 20170710
  Transmission Date: 20171127
  Serious: No
  Sender: FDA-Public Use
  Company Number: US-SAOL THERAPEUTICS-2017SAO00345

PATIENT
  Age: 78 Year
  Sex: Male

DRUGS (24)
  1. BACLOFEN. [Suspect]
     Active Substance: BACLOFEN
     Dosage: 30.326 ?G, \DAY
     Route: 037
     Dates: start: 20141030
  2. BACLOFEN. [Suspect]
     Active Substance: BACLOFEN
     Dosage: 40.988 ?G, \DAY
     Route: 037
     Dates: start: 20141030
  3. HYDROMORPHONE [Suspect]
     Active Substance: HYDROMORPHONE
     Dosage: 8.510 MG, \DAY
     Route: 037
     Dates: start: 20160121
  4. CLONIDINE. [Suspect]
     Active Substance: CLONIDINE
     Dosage: 298.09 ?G, \DAY
     Route: 037
     Dates: start: 20141030, end: 20151125
  5. CLONIDINE. [Suspect]
     Active Substance: CLONIDINE
     Dosage: 252.05 ?G, \DAY
     Route: 037
     Dates: start: 20151125, end: 20160121
  6. CLONIDINE. [Suspect]
     Active Substance: CLONIDINE
     Dosage: 170.21 ?G, \DAY
     Route: 037
     Dates: start: 20160121
  7. BUPIVACAINE. [Suspect]
     Active Substance: BUPIVACAINE
     Dosage: 4.35 MG, \DAY
     Route: 037
     Dates: start: 20151125, end: 20160121
  8. BACLOFEN. [Suspect]
     Active Substance: BACLOFEN
     Dosage: 23.924 ?G, \DAY
     Route: 037
     Dates: start: 20151125, end: 20160121
  9. BUPIVACAINE. [Suspect]
     Active Substance: BUPIVACAINE
     Dosage: 4.255 MG, \DAY
     Route: 037
     Dates: start: 20160121
  10. BUPIVACAINE. [Suspect]
     Active Substance: BUPIVACAINE
     Dosage: 6.208 MG, \DAY
     Route: 037
     Dates: start: 20160121
  11. BACLOFEN. [Suspect]
     Active Substance: BACLOFEN
     Dosage: 23.403 ?G, \DAY
     Route: 037
     Dates: start: 20160121
  12. BACLOFEN. [Suspect]
     Active Substance: BACLOFEN
     Dosage: 34.143 ?G, \DAY
     Route: 037
     Dates: start: 20160121
  13. HYDROMORPHONE [Suspect]
     Active Substance: HYDROMORPHONE
     Dosage: 11.027 MG, \DAY
     Route: 037
     Dates: start: 20141030, end: 20151125
  14. CLONIDINE. [Suspect]
     Active Substance: CLONIDINE
     Dosage: 173.99 ?G, \DAY
     Route: 037
     Dates: start: 20151125, end: 20160121
  15. BUPIVACAINE. [Suspect]
     Active Substance: BUPIVACAINE
     Dosage: 5.514 MG, \DAY
     Route: 037
     Dates: start: 20141030, end: 20151125
  16. BUPIVACAINE. [Suspect]
     Active Substance: BUPIVACAINE
     Dosage: 6.301 MG, \DAY
     Route: 037
     Dates: start: 20151125, end: 20160121
  17. HYDROMORPHONE [Suspect]
     Active Substance: HYDROMORPHONE
     Dosage: 12.416 MG, \DAY
     Route: 037
     Dates: start: 20160121
  18. BACLOFEN. [Suspect]
     Active Substance: BACLOFEN
     Dosage: 34.657 ?G, \DAY
     Route: 037
     Dates: start: 20151125, end: 20160121
  19. HYDROMORPHONE [Suspect]
     Active Substance: HYDROMORPHONE
     Dosage: 14.905 MG, \DAY
     Route: 037
     Dates: start: 20141030, end: 20151125
  20. CLONIDINE. [Suspect]
     Active Substance: CLONIDINE
     Dosage: 248.31 ?G, \DAY
     Route: 037
     Dates: start: 20160121
  21. HYDROMORPHONE [Suspect]
     Active Substance: HYDROMORPHONE
     Dosage: 8.699 MG, \DAY
     Route: 037
     Dates: start: 20151125, end: 20160121
  22. HYDROMORPHONE [Suspect]
     Active Substance: HYDROMORPHONE
     Dosage: 12.603 MG, \DAY
     Route: 037
     Dates: start: 20151125, end: 20160121
  23. CLONIDINE. [Suspect]
     Active Substance: CLONIDINE
     Dosage: 220.55 ?G, \DAY
     Route: 037
     Dates: start: 20141030, end: 20151125
  24. BUPIVACAINE. [Suspect]
     Active Substance: BUPIVACAINE
     Dosage: 7.452 MG, \DAY
     Route: 037
     Dates: start: 20141030, end: 20151125

REACTIONS (3)
  - Device failure [Recovered/Resolved]
  - Pain [Not Recovered/Not Resolved]
  - Device infusion issue [Unknown]

NARRATIVE: CASE EVENT DATE: 20150916
